FAERS Safety Report 14589422 (Version 1)
Quarter: 2018Q1

REPORT INFORMATION
  Report Type: Spontaneous
  Country: US (occurrence: US)
  Receive Date: 20180302
  Receipt Date: 20180302
  Transmission Date: 20180509
  Serious: No
  Sender: FDA-Public Use
  Company Number: US-009507513-1802USA011853

PATIENT
  Age: 38 Year
  Sex: Female
  Weight: 83.45 kg

DRUGS (1)
  1. NEXPLANON [Suspect]
     Active Substance: ETONOGESTREL
     Indication: CONTRACEPTION
     Dosage: UNK, 3 YEAR IMPLANT, LEFT ARM
     Route: 059
     Dates: start: 201509

REACTIONS (2)
  - Adverse event [Unknown]
  - Complication associated with device [Unknown]

NARRATIVE: CASE EVENT DATE: 201709
